FAERS Safety Report 13687871 (Version 2)
Quarter: 2017Q4

REPORT INFORMATION
  Report Type: Spontaneous
  Country: FR (occurrence: FR)
  Receive Date: 20170626
  Receipt Date: 20171010
  Transmission Date: 20180320
  Serious: Yes (Hospitalization, Other)
  Sender: FDA-Public Use
  Company Number: FR-ROCHE-1953690

PATIENT
  Age: 64 Year
  Sex: Female

DRUGS (13)
  1. CLAIRYG [Suspect]
     Active Substance: HUMAN IMMUNOGLOBULIN G
     Indication: DERMATOMYOSITIS
     Route: 041
     Dates: start: 20170503, end: 20170505
  2. ZELITREX [Concomitant]
     Active Substance: VALACYCLOVIR HYDROCHLORIDE
  3. CLAIRYG [Suspect]
     Active Substance: HUMAN IMMUNOGLOBULIN G
     Dosage: THERAPY RESTARTED?2 G/KG (TOTAL DOSE OF 120 G) WAS ADMINISTERED AS FRACTIONED TREATMENT OVER 4 DAYS
     Route: 041
     Dates: start: 20170725
  4. PROTOPIC [Concomitant]
     Active Substance: TACROLIMUS
  5. MABTHERA [Suspect]
     Active Substance: RITUXIMAB
     Indication: DERMATOMYOSITIS
     Route: 041
     Dates: start: 20170502, end: 20170502
  6. CLAIRYG [Suspect]
     Active Substance: HUMAN IMMUNOGLOBULIN G
     Dosage: 2 G/KG (TOTAL DOSE OF 120 G) WAS ADMINISTERED AS FRACTIONED TREATMENT OVER 4 DAYS
     Route: 041
     Dates: start: 20170828, end: 20170831
  7. CORTANCYL [Concomitant]
     Active Substance: PREDNISONE
  8. DERMOVAL (FRANCE) [Concomitant]
  9. ALPRAZOLAM. [Concomitant]
     Active Substance: ALPRAZOLAM
  10. DOLIPRANE [Concomitant]
     Active Substance: ACETAMINOPHEN
  11. MABTHERA [Suspect]
     Active Substance: RITUXIMAB
     Route: 041
     Dates: start: 20170516, end: 20170516
  12. FOSAVANCE [Concomitant]
     Active Substance: ALENDRONATE SODIUM\CHOLECALCIFEROL
  13. PAROXETINE. [Concomitant]
     Active Substance: PAROXETINE

REACTIONS (3)
  - Off label use [Unknown]
  - Intentional product use issue [Unknown]
  - Venous thrombosis [Recovered/Resolved]

NARRATIVE: CASE EVENT DATE: 201706
